FAERS Safety Report 11921165 (Version 1)
Quarter: 2016Q1

REPORT INFORMATION
  Report Type: Report from Study
  Country: IE (occurrence: IE)
  Receive Date: 20160115
  Receipt Date: 20160115
  Transmission Date: 20160526
  Serious: Yes (Hospitalization)
  Sender: FDA-Public Use
  Company Number: IE-BRISTOL-MYERS SQUIBB COMPANY-BMS-2016-000889

PATIENT
  Age: 78 Year
  Sex: Male
  Weight: 99.1 kg

DRUGS (1)
  1. NIVOLUMAB [Suspect]
     Active Substance: NIVOLUMAB
     Indication: MALIGNANT MELANOMA
     Dosage: 3 MG/KG, Q2WK
     Route: 042
     Dates: start: 20151207

REACTIONS (1)
  - Myositis [Recovering/Resolving]

NARRATIVE: CASE EVENT DATE: 20151223
